FAERS Safety Report 10014841 (Version 1)
Quarter: 2014Q1

REPORT INFORMATION
  Report Type: Report from Study
  Country: JP (occurrence: JP)
  Receive Date: 20140317
  Receipt Date: 20140317
  Transmission Date: 20141002
  Serious: Yes (Hospitalization)
  Sender: FDA-Public Use
  Company Number: JP-TAKEDA-2014TJP003849

PATIENT
  Age: 50 Year
  Sex: Male
  Weight: 70.8 kg

DRUGS (6)
  1. ALOGLIPTIN [Suspect]
     Indication: TYPE 2 DIABETES MELLITUS
     Dosage: 12.5 MG, QD
     Route: 048
     Dates: start: 20121102, end: 20130502
  2. ALOGLIPTIN [Suspect]
     Dosage: 25 MG, QD
     Route: 048
     Dates: start: 20130503, end: 20130627
  3. ACTOS TABLETS 30 [Suspect]
     Indication: TYPE 2 DIABETES MELLITUS
     Dosage: 15 MG, 1 DAYS
     Route: 048
     Dates: start: 20121005
  4. BLOPRESS [Concomitant]
     Dosage: 4 MG, 1 DAYS
     Route: 048
     Dates: start: 20121206
  5. METGLUCO [Concomitant]
     Indication: TYPE 2 DIABETES MELLITUS
     Dosage: 500 MG, 1  DAYS
     Route: 048
     Dates: start: 20120920, end: 20121101
  6. METGLUCO [Concomitant]
     Dosage: 250 MG, 1 DAYS
     Route: 048
     Dates: start: 20121102

REACTIONS (1)
  - Angina pectoris [Not Recovered/Not Resolved]
